FAERS Safety Report 11884712 (Version 1)
Quarter: 2016Q1

REPORT INFORMATION
  Report Type: Report from Study
  Country: IN (occurrence: IN)
  Receive Date: 20160104
  Receipt Date: 20160104
  Transmission Date: 20160526
  Serious: Yes (Death, Other)
  Sender: FDA-Public Use
  Company Number: IN-ACCORD-036798

PATIENT
  Age: 37 Year
  Sex: Male

DRUGS (5)
  1. ZALTRAP [Suspect]
     Active Substance: ZIV-AFLIBERCEPT
     Indication: COLON CANCER RECURRENT
     Dosage: 4 MG/KG Q2W ON DAY 1
     Dates: start: 201301
  2. FLUOROURACIL. [Suspect]
     Active Substance: FLUOROURACIL
     Indication: ADENOCARCINOMA OF COLON
     Dosage: 10 CYCLES FOR FOLFOX
     Dates: start: 201208, end: 201212
  3. IRINOTECAN [Suspect]
     Active Substance: IRINOTECAN
     Indication: COLON CANCER RECURRENT
     Dosage: 180 MG/M2 ON DAY 1
     Dates: start: 201301
  4. OXALIPLATIN. [Suspect]
     Active Substance: OXALIPLATIN
     Indication: ADENOCARCINOMA OF COLON
     Dosage: 10 CYCLES OF FOLFOX-4
     Dates: start: 201208, end: 201212
  5. FOLINIC ACID [Suspect]
     Active Substance: LEUCOVORIN
     Indication: ADENOCARCINOMA OF COLON
     Dosage: 10 CYCLES AS FOLFOX REGIMEN
     Dates: start: 201208, end: 201212

REACTIONS (2)
  - Treatment failure [Unknown]
  - Neutropenia [Unknown]
